FAERS Safety Report 12182254 (Version 1)
Quarter: 2016Q1

REPORT INFORMATION
  Report Type: Spontaneous
  Country: AU (occurrence: AU)
  Receive Date: 20160316
  Receipt Date: 20160316
  Transmission Date: 20160526
  Serious: Yes (Other)
  Sender: FDA-Public Use
  Company Number: AU-CIPLA LTD.-2016AU02340

PATIENT

DRUGS (2)
  1. ELEVIT [Suspect]
     Active Substance: FOLIC ACID\IRON\MINERALS\VITAMINS
     Dosage: UNK
     Route: 048
  2. LAMOTRIGINE. [Suspect]
     Active Substance: LAMOTRIGINE
     Dosage: UNK
     Route: 048

REACTIONS (7)
  - Accidental exposure to product [Unknown]
  - Somnolence [Unknown]
  - Seizure [Recovered/Resolved]
  - Irritability [Recovered/Resolved]
  - Nystagmus [Unknown]
  - Overdose [Unknown]
  - Vomiting [Unknown]
